FAERS Safety Report 19156577 (Version 1)
Quarter: 2021Q2

REPORT INFORMATION
  Report Type: Spontaneous
  Country: US (occurrence: US)
  Receive Date: 20210419
  Receipt Date: 20210419
  Transmission Date: 20210717
  Serious: No
  Sender: FDA-Public Use
  Company Number: US-DRREDDYS-USA/USA/21/0134293

PATIENT
  Age: 58 Year
  Sex: Male

DRUGS (1)
  1. ZENATANE [Suspect]
     Active Substance: ISOTRETINOIN
     Indication: PRODUCT USED FOR UNKNOWN INDICATION
     Dosage: RMA ISSUE DATE: 18/DEC/2020 4:15:50 PM, 18/JAN/2021 10:45:20 AM, 19/FEB/2021 10:45:21 AM
     Route: 048

REACTIONS (1)
  - Adverse drug reaction [Unknown]
